FAERS Safety Report 13865355 (Version 2)
Quarter: 2017Q4

REPORT INFORMATION
  Report Type: Report from Study
  Country: GB (occurrence: GB)
  Receive Date: 20170814
  Receipt Date: 20171113
  Transmission Date: 20180320
  Serious: Yes (Hospitalization, Other)
  Sender: FDA-Public Use
  Company Number: GB-AMGEN-GBRSL2017028609

PATIENT
  Sex: Male

DRUGS (1)
  1. ARANESP [Suspect]
     Active Substance: DARBEPOETIN ALFA
     Indication: PRODUCT USED FOR UNKNOWN INDICATION
     Dosage: 20 MUG, UNK
     Route: 065

REACTIONS (6)
  - Weight decreased [Unknown]
  - Diabetes mellitus [Unknown]
  - Decreased appetite [Unknown]
  - Somnolence [Unknown]
  - Blood pressure decreased [Unknown]
  - Blood glucose decreased [Unknown]
